FAERS Safety Report 16411413 (Version 1)
Quarter: 2019Q2

REPORT INFORMATION
  Report Type: Spontaneous
  Country: CA (occurrence: CA)
  Receive Date: 20190610
  Receipt Date: 20190610
  Transmission Date: 20190711
  Serious: Yes (Hospitalization, Other)
  Sender: FDA-Public Use
  Company Number: CA-TEVA-2019-CA-1061466

PATIENT
  Age: 57 Year
  Sex: Male

DRUGS (2)
  1. CALCIUMCHLORIDE/GLUCOSE/MAGNESIUM CHLORIDE/SODIUM CHLORIDE/SODIUM LACT [Suspect]
     Active Substance: CALCIUM CHLORIDE\DEXTROSE\MAGNESIUM CHLORIDE\SODIUM CHLORIDE\SODIUM LACTATE
     Indication: PERITONEAL DIALYSIS
     Route: 033
  2. PREDNISONE. [Suspect]
     Active Substance: PREDNISONE
     Indication: TEMPORAL ARTERITIS
     Route: 065

REACTIONS (7)
  - Diabetes mellitus [Recovered/Resolved]
  - Peritoneal dialysis complication [Recovered/Resolved]
  - Disease complication [Recovered/Resolved]
  - Headache [Recovered/Resolved]
  - Peripheral swelling [Recovered/Resolved]
  - Diabetic complication [Recovered/Resolved]
  - Mental disorder [Recovered/Resolved]
